FAERS Safety Report 9109230 (Version 1)
Quarter: 2013Q1

REPORT INFORMATION
  Report Type: Spontaneous
  Country: FR (occurrence: FR)
  Receive Date: 20130222
  Receipt Date: 20130222
  Transmission Date: 20140127
  Serious: Yes (Life-Threatening)
  Sender: FDA-Public Use
  Company Number: PHHY2013FR017283

PATIENT
  Age: 83 Year
  Sex: Female

DRUGS (5)
  1. TAREG [Suspect]
     Dosage: 80 MG, QD
     Route: 048
     Dates: end: 20130126
  2. LASILIX [Suspect]
     Dosage: 40 MG, QD
     Route: 048
     Dates: end: 20130126
  3. NOVONORM [Concomitant]
  4. NEBILOX [Concomitant]
  5. ROCEPHINE [Concomitant]
     Indication: INFECTION

REACTIONS (3)
  - Renal tubular necrosis [Recovered/Resolved]
  - Renal failure acute [Recovered/Resolved]
  - Blood potassium increased [Recovered/Resolved]
